FAERS Safety Report 4987049-5 (Version None)
Quarter: 2006Q2

REPORT INFORMATION
  Report Type: 
  Country: None (occurrence: None)
  Receive Date: 20060501
  Receipt Date: 20060413
  Transmission Date: 20061013
  Serious: Yes (Hospitalization)
  Sender: FDA-Public Use
  Company Number: PHBS2006NL05457

PATIENT
  Age: 75 Year
  Sex: Male

DRUGS (3)
  1. LIORESAL [Suspect]
     Dosage: 10 MG, BID
     Route: 048
  2. THEOPHYLLINE [Concomitant]
     Dosage: 250 MG, TID
     Route: 065
  3. TEMAZEPAM [Concomitant]
     Dosage: 10 MG, QD
     Route: 065

REACTIONS (1)
  - GASTROINTESTINAL HYPOMOTILITY [None]
